FAERS Safety Report 6480376-4 (Version None)
Quarter: 2009Q4

REPORT INFORMATION
  Report Type: 
  Country: None (occurrence: None)
  Receive Date: 20091202
  Receipt Date: 20091119
  Transmission Date: 20100525
  Serious: Yes (Other)
  Sender: FDA-Public Use
  Company Number: 1-20733480

PATIENT
  Age: 47 Year
  Sex: Female

DRUGS (9)
  1. FENTANYL-50 [Suspect]
     Indication: BACK PAIN
     Dosage: 50 MCG/HR, TRANSDERMAL
     Route: 062
     Dates: start: 20070101, end: 20091101
  2. FENTANYL-50 [Suspect]
     Indication: NEPHROLITHIASIS
     Dosage: 50 MCG/HR, TRANSDERMAL
     Route: 062
     Dates: start: 20070101, end: 20091101
  3. FENTANYL-25 [Suspect]
     Indication: BACK PAIN
     Dosage: 25 MCG/HR EVERY 72 HR, TRANSDERMAL
     Route: 062
     Dates: start: 20091111, end: 20091117
  4. CRESTOR (ROSUVASTATIN CALCIUM) 10 MG [Concomitant]
  5. METOPROLOL SUCCINATE [Concomitant]
  6. LUNESTA [Concomitant]
  7. LORAZEPAM [Concomitant]
  8. FLEXERIL [Concomitant]
  9. CIPROFLOXACIN [Concomitant]

REACTIONS (9)
  - COLD SWEAT [None]
  - HEADACHE [None]
  - HYPERHIDROSIS [None]
  - MALAISE [None]
  - MUSCLE CONTRACTIONS INVOLUNTARY [None]
  - OEDEMA PERIPHERAL [None]
  - PRODUCT SUBSTITUTION ISSUE [None]
  - RENAL DISORDER [None]
  - VOMITING [None]
